FAERS Safety Report 16988247 (Version 3)
Quarter: 2021Q2

REPORT INFORMATION
  Report Type: Spontaneous
  Country: US (occurrence: US)
  Receive Date: 20191104
  Receipt Date: 20210525
  Transmission Date: 20210716
  Serious: Yes (Death, Life-Threatening, Other)
  Sender: FDA-Public Use
  Company Number: US-AMGEN-USASP2019181573

PATIENT

DRUGS (10)
  1. CARFILZOMIB [Suspect]
     Active Substance: CARFILZOMIB
     Dosage: 27 MILLIGRAM/SQ. METER; THEREAFTER
     Route: 065
  2. CARFILZOMIB [Suspect]
     Active Substance: CARFILZOMIB
     Indication: PLASMA CELL MYELOMA
     Dosage: 20 MILLIGRAM/SQ. METER; DAYS 1 AND 2 THEN
     Route: 065
  3. ETOPOSIDE. [Suspect]
     Active Substance: ETOPOSIDE
     Indication: PLASMA CELL MYELOMA
     Dosage: UNK
     Route: 065
  4. THALIDOMIDE [Suspect]
     Active Substance: THALIDOMIDE
     Indication: PLASMA CELL MYELOMA
     Dosage: UNK
     Route: 065
  5. DEXAMETHASONE. [Suspect]
     Active Substance: DEXAMETHASONE
     Indication: PLASMA CELL MYELOMA
     Dosage: UNK
     Route: 065
  6. DOXORUBICIN [Suspect]
     Active Substance: DOXORUBICIN
     Indication: PLASMA CELL MYELOMA
     Dosage: UNK
     Route: 065
  7. POMALIDOMIDE [Suspect]
     Active Substance: POMALIDOMIDE
     Indication: PLASMA CELL MYELOMA
     Dosage: UNK
     Route: 065
  8. CISPLATIN. [Suspect]
     Active Substance: CISPLATIN
     Indication: PLASMA CELL MYELOMA
     Dosage: UNK
     Route: 065
  9. CYCLOPHOSPHAMIDE. [Suspect]
     Active Substance: CYCLOPHOSPHAMIDE
     Indication: PLASMA CELL MYELOMA
     Dosage: UNK
     Route: 065
  10. LENALIDOMIDE [Suspect]
     Active Substance: LENALIDOMIDE
     Indication: PLASMA CELL MYELOMA
     Dosage: UNK
     Route: 065

REACTIONS (24)
  - Leukopenia [Unknown]
  - Cholecystitis [Unknown]
  - Atrial fibrillation [Unknown]
  - Acute myocardial infarction [Unknown]
  - Transaminases increased [Unknown]
  - Drug ineffective [Unknown]
  - Thrombocytopenia [Unknown]
  - Cardiac failure [Unknown]
  - Febrile neutropenia [Unknown]
  - Supraventricular tachycardia [Unknown]
  - Plasma cell myeloma [Fatal]
  - Acute kidney injury [Unknown]
  - Bradycardia [Unknown]
  - Performance status decreased [Unknown]
  - Neutropenia [Unknown]
  - Infection [Fatal]
  - Graft versus host disease [Fatal]
  - Pericarditis [Unknown]
  - Tumour lysis syndrome [Unknown]
  - Colitis [Unknown]
  - Therapeutic product effect incomplete [Unknown]
  - Plasma cell leukaemia [Fatal]
  - Deep vein thrombosis [Unknown]
  - Anaemia [Unknown]
